FAERS Safety Report 17933464 (Version 5)
Quarter: 2020Q3

REPORT INFORMATION
  Report Type: Spontaneous
  Country: CA (occurrence: CA)
  Receive Date: 20200624
  Receipt Date: 20200807
  Transmission Date: 20201103
  Serious: Yes (Other)
  Sender: FDA-Public Use
  Company Number: CA-PFIZER INC-2020241106

PATIENT
  Age: 73 Year
  Sex: Female

DRUGS (7)
  1. ARAVA [Concomitant]
     Active Substance: LEFLUNOMIDE
     Dosage: UNK
     Route: 065
  2. PLAQUENIL [Concomitant]
     Active Substance: HYDROXYCHLOROQUINE SULFATE
     Dosage: 400 MG, DAILY
  3. MACROBID [Concomitant]
     Active Substance: NITROFURANTOIN\NITROFURANTOIN MONOHYDRATE
     Indication: CYSTITIS
     Dosage: UNK
  4. METHOTREXATE SODIUM. [Suspect]
     Active Substance: METHOTREXATE SODIUM
     Dosage: 20 MG, WEEKLY
     Route: 058
  5. GABAPENTIN. [Concomitant]
     Active Substance: GABAPENTIN
     Dosage: HS
     Route: 065
  6. TYLENOL [Concomitant]
     Active Substance: ACETAMINOPHEN
     Dosage: UNK, 4X/DAY
     Route: 065
  7. TYLENOL WITH CODEINE [Concomitant]
     Active Substance: ACETAMINOPHEN\CODEINE PHOSPHATE
     Dosage: UNK, AS NEEDED
     Route: 065

REACTIONS (18)
  - Mouth ulceration [Unknown]
  - Nausea [Unknown]
  - Overdose [Unknown]
  - Off label use [Unknown]
  - Osteoarthritis [Unknown]
  - Incorrect route of product administration [Unknown]
  - Rheumatoid arthritis [Unknown]
  - Therapy non-responder [Unknown]
  - Dysphonia [Unknown]
  - Systemic lupus erythematosus [Unknown]
  - Cardiomegaly [Unknown]
  - Drug intolerance [Unknown]
  - Traumatic lung injury [Unknown]
  - Atelectasis [Unknown]
  - Stomatitis [Unknown]
  - Dyspnoea [Unknown]
  - Chest discomfort [Unknown]
  - Hypergammaglobulinaemia benign monoclonal [Unknown]
